FAERS Safety Report 21197367 (Version 1)
Quarter: 2022Q3

REPORT INFORMATION
  Report Type: Spontaneous
  Country: US (occurrence: US)
  Receive Date: 20220810
  Receipt Date: 20220810
  Transmission Date: 20221027
  Serious: No
  Sender: FDA-Public Use
  Company Number: US-SANOFI-01216145

PATIENT
  Sex: Male

DRUGS (1)
  1. AUBAGIO [Suspect]
     Active Substance: TERIFLUNOMIDE
     Dosage: 14 MG; QD
     Route: 048
     Dates: start: 2021

REACTIONS (3)
  - Blister [Not Recovered/Not Resolved]
  - Symptom recurrence [Unknown]
  - Rash [Not Recovered/Not Resolved]
